FAERS Safety Report 7759614-3 (Version None)
Quarter: 2011Q3

REPORT INFORMATION
  Report Type: 
  Country: None (occurrence: None)
  Receive Date: 20110919
  Receipt Date: 20110906
  Transmission Date: 20111222
  Serious: Yes (Hospitalization)
  Sender: FDA-Public Use
  Company Number: US-JNJFOC-20110102260

PATIENT
  Age: 2 Year
  Sex: Female
  Weight: 13.6 kg

DRUGS (2)
  1. TYLENOL-500 [Suspect]
     Indication: PYREXIA
     Route: 048
     Dates: start: 20070919
  2. TYLENOL-500 [Suspect]
     Route: 048

REACTIONS (1)
  - STEVENS-JOHNSON SYNDROME [None]
